FAERS Safety Report 10891352 (Version 3)
Quarter: 2016Q4

REPORT INFORMATION
  Report Type: Spontaneous
  Country: US (occurrence: US)
  Receive Date: 20150306
  Receipt Date: 20161114
  Transmission Date: 20170206
  Serious: Yes (Other)
  Sender: FDA-Public Use
  Company Number: US-BEH-2015049247

PATIENT
  Age: 7 Year
  Sex: Male

DRUGS (1)
  1. HUMATE-P [Suspect]
     Active Substance: HUMAN COAGULATION FACTOR VIII/VON WILLEBRAND FACTOR COMPLEX
     Indication: VON WILLEBRAND^S DISEASE
     Route: 042

REACTIONS (6)
  - Von Willebrand^s factor inhibition [Unknown]
  - Drug effect decreased [Unknown]
  - Hypersensitivity [Unknown]
  - Dyspnoea [Unknown]
  - Tachypnoea [Unknown]
  - Respiratory distress [Unknown]
